FAERS Safety Report 25600543 (Version 2)
Quarter: 2025Q3

REPORT INFORMATION
  Report Type: Spontaneous
  Country: JP (occurrence: JP)
  Receive Date: 20250724
  Receipt Date: 20250820
  Transmission Date: 20251020
  Serious: Yes (Other)
  Sender: REGENERON
  Company Number: JP-BAYER-2025A097245

PATIENT
  Age: 75 Year
  Sex: Female

DRUGS (8)
  1. EYLEA HD [Suspect]
     Active Substance: AFLIBERCEPT
     Indication: Age-related macular degeneration
     Route: 031
     Dates: start: 20250502, end: 20250502
  2. EYLEA HD [Suspect]
     Active Substance: AFLIBERCEPT
     Route: 031
     Dates: start: 20250606, end: 20250606
  3. EYLEA HD [Suspect]
     Active Substance: AFLIBERCEPT
     Route: 031
     Dates: start: 20250711, end: 20250711
  4. EYLEA [Suspect]
     Active Substance: AFLIBERCEPT
     Indication: Age-related macular degeneration
     Route: 031
     Dates: start: 20191129, end: 20191129
  5. EYLEA [Suspect]
     Active Substance: AFLIBERCEPT
     Route: 031
     Dates: start: 20200221, end: 20200221
  6. EYLEA [Suspect]
     Active Substance: AFLIBERCEPT
     Route: 031
     Dates: start: 20200612, end: 20200612
  7. EYLEA [Suspect]
     Active Substance: AFLIBERCEPT
     Route: 031
     Dates: start: 20201002, end: 20201002
  8. EYLEA [Suspect]
     Active Substance: AFLIBERCEPT
     Route: 031
     Dates: start: 20210205, end: 20210205

REACTIONS (1)
  - Hallucination [Recovered/Resolved]

NARRATIVE: CASE EVENT DATE: 20250711
